FAERS Safety Report 18248097 (Version 1)
Quarter: 2020Q3

REPORT INFORMATION
  Report Type: Spontaneous
  Country: US (occurrence: US)
  Receive Date: 20200909
  Receipt Date: 20200909
  Transmission Date: 20201103
  Serious: No
  Sender: FDA-Public Use
  Company Number: US-PERRIGO-20US009110

PATIENT
  Age: 52 Year
  Sex: Male
  Weight: 92.97 kg

DRUGS (2)
  1. ALBUTEROL SULFATE. [Suspect]
     Active Substance: ALBUTEROL SULFATE
     Indication: ASTHMA
     Dosage: 180 MCG, EVERY FOUR HOURS, PRN
     Route: 055
     Dates: start: 2019, end: 202006
  2. ALBUTEROL SULFATE. [Suspect]
     Active Substance: ALBUTEROL SULFATE
     Dosage: UNKNOWN PARTIAL DOSE, PRN
     Route: 055
     Dates: start: 202006, end: 20200621

REACTIONS (2)
  - Underdose [Recovered/Resolved]
  - Device delivery system issue [Recovered/Resolved]

NARRATIVE: CASE EVENT DATE: 202006
